FAERS Safety Report 9333309 (Version 2)
Quarter: 2014Q1

REPORT INFORMATION
  Report Type: Spontaneous
  Country: US (occurrence: US)
  Receive Date: 20130606
  Receipt Date: 20140206
  Transmission Date: 20141002
  Serious: Yes (Other)
  Sender: FDA-Public Use
  Company Number: US-JNJFOC-20130515662

PATIENT
  Sex: Female
  Weight: 86.18 kg

DRUGS (5)
  1. DURAGESIC [Suspect]
     Indication: BACK PAIN
     Route: 062
     Dates: start: 2013
  2. DURAGESIC [Suspect]
     Indication: ARTHRALGIA
     Route: 062
     Dates: start: 2013
  3. DURAGESIC [Suspect]
     Indication: BACK PAIN
     Route: 062
  4. DURAGESIC [Suspect]
     Indication: ARTHRALGIA
     Route: 062
  5. OXYCODONE [Concomitant]
     Indication: PAIN
     Route: 048

REACTIONS (6)
  - Pain [Unknown]
  - Menopause [Not Recovered/Not Resolved]
  - Wrong technique in drug usage process [Unknown]
  - Hyperhidrosis [Not Recovered/Not Resolved]
  - Wrong technique in drug usage process [Unknown]
  - Product quality issue [Unknown]
